FAERS Safety Report 10167867 (Version 1)
Quarter: 2014Q2

REPORT INFORMATION
  Report Type: Report from Study
  Country: SE (occurrence: SE)
  Receive Date: 20140512
  Receipt Date: 20140512
  Transmission Date: 20141212
  Serious: Yes (Hospitalization, Other)
  Sender: FDA-Public Use
  Company Number: SE-GLAXOSMITHKLINE-B0992525A

PATIENT
  Age: 67 Year
  Sex: Female
  Weight: 55 kg

DRUGS (8)
  1. OFATUMUMAB [Suspect]
     Indication: CHRONIC LYMPHOCYTIC LEUKAEMIA
     Dosage: 2000MG CYCLIC
     Route: 042
     Dates: start: 20130619, end: 20131125
  2. ALLOPURINOL [Concomitant]
     Dates: start: 20130620
  3. FRAGMIN [Concomitant]
  4. ALVEDON [Concomitant]
  5. COCILLANA [Concomitant]
  6. EUSAPRIM [Concomitant]
  7. ACICLOVIR [Concomitant]
     Dates: start: 20130822
  8. AZITHROMAX [Concomitant]

REACTIONS (3)
  - Pulmonary embolism [Recovered/Resolved]
  - Lung infection [Recovered/Resolved]
  - Infestation [Recovered/Resolved]
